FAERS Safety Report 13189695 (Version 4)
Quarter: 2017Q4

REPORT INFORMATION
  Report Type: Spontaneous
  Country: FR (occurrence: FR)
  Receive Date: 20170206
  Receipt Date: 20171220
  Transmission Date: 20180320
  Serious: Yes (Disabling, Other)
  Sender: FDA-Public Use
  Company Number: FR-REGENERON PHARMACEUTICALS, INC.-2017-11309

PATIENT

DRUGS (6)
  1. EYLEA [Suspect]
     Active Substance: AFLIBERCEPT
     Dosage: 1 DF, ONCE
     Route: 047
     Dates: start: 20140415, end: 20140415
  2. EYLEA [Suspect]
     Active Substance: AFLIBERCEPT
     Indication: NEOVASCULAR AGE-RELATED MACULAR DEGENERATION
     Dosage: 1 DF, ONCE
     Route: 047
     Dates: start: 20140114, end: 20140114
  3. EYLEA [Suspect]
     Active Substance: AFLIBERCEPT
     Dosage: 1 DF, ONCE
     Route: 047
     Dates: start: 20141017, end: 20141017
  4. EYLEA [Suspect]
     Active Substance: AFLIBERCEPT
     Dosage: 1 DF, ONCE, RIGHT EYE
     Route: 047
     Dates: start: 20150612, end: 20150612
  5. EYLEA [Suspect]
     Active Substance: AFLIBERCEPT
     Dosage: 1 DF, ONCE
     Route: 047
     Dates: start: 20150130, end: 20150130
  6. EYLEA [Suspect]
     Active Substance: AFLIBERCEPT
     Dosage: 1 DF, ONCE, RIGHT EYE
     Route: 047
     Dates: start: 20151124, end: 20151124

REACTIONS (5)
  - Gait disturbance [Unknown]
  - Cataract [Unknown]
  - Blindness [Unknown]
  - Altered visual depth perception [Unknown]
  - Dizziness [Unknown]

NARRATIVE: CASE EVENT DATE: 201509
